FAERS Safety Report 13547955 (Version 1)
Quarter: 2017Q2

REPORT INFORMATION
  Report Type: Spontaneous
  Country: US (occurrence: US)
  Receive Date: 20170516
  Receipt Date: 20170516
  Transmission Date: 20170830
  Serious: Yes (Hospitalization, Other)
  Sender: FDA-Public Use
  Company Number: US-LUPIN PHARMACEUTICALS INC.-2017-02172

PATIENT
  Age: 59 Year
  Sex: Male

DRUGS (5)
  1. VANCOMYCIN [Suspect]
     Active Substance: VANCOMYCIN
     Indication: OSTEOMYELITIS
     Dosage: 1 G, BID, 11.3 MG/KG, EVERY 12 HOURS
     Route: 065
  2. CIPROFLOXACIN. [Concomitant]
     Active Substance: CIPROFLOXACIN
     Indication: OSTEOMYELITIS
     Route: 048
  3. PIPERACILLIN AND TAZOBACTAM [Concomitant]
     Active Substance: PIPERACILLIN SODIUM\TAZOBACTAM SODIUM
     Indication: OSTEOMYELITIS
     Dosage: UNK
     Route: 065
  4. VANCOMYCIN [Suspect]
     Active Substance: VANCOMYCIN
     Dosage: 1 G, TID
  5. VANCOMYCIN [Suspect]
     Active Substance: VANCOMYCIN
     Dosage: 1.5 G, BID
     Route: 065

REACTIONS (1)
  - Acute kidney injury [Recovered/Resolved]
